FAERS Safety Report 8022988-2 (Version None)
Quarter: 2012Q1

REPORT INFORMATION
  Report Type: 
  Country: None (occurrence: None)
  Receive Date: 20120104
  Receipt Date: 20111219
  Transmission Date: 20120608
  Serious: Yes (Hospitalization, Other)
  Sender: FDA-Public Use
  Company Number: PHEH2011US012077

PATIENT
  Sex: Female

DRUGS (4)
  1. PANTOPRAZOLE [Concomitant]
     Indication: ULCER
  2. AFINITOR [Suspect]
     Dosage: 10 MG, QD
  3. PREDNISONE TAB [Concomitant]
  4. ANTICOAGULANTS [Concomitant]

REACTIONS (6)
  - CONCOMITANT DISEASE PROGRESSION [None]
  - PULMONARY EMBOLISM [None]
  - OEDEMA PERIPHERAL [None]
  - DIARRHOEA [None]
  - DEEP VEIN THROMBOSIS [None]
  - HAEMATEMESIS [None]
